FAERS Safety Report 5000259-6 (Version None)
Quarter: 2006Q2

REPORT INFORMATION
  Report Type: 
  Country: None (occurrence: None)
  Receive Date: 20060511
  Receipt Date: 20050408
  Transmission Date: 20061013
  Serious: Yes (Hospitalization)
  Sender: FDA-Public Use
  Company Number: US-MERCK-0504USA01612

PATIENT
  Age: 45 Year
  Sex: Male
  Weight: 93 kg

DRUGS (8)
  1. VIOXX [Suspect]
     Indication: PAIN MANAGEMENT
     Route: 048
     Dates: start: 20020102, end: 20030204
  2. SOMA [Concomitant]
     Route: 065
  3. DURAGESIC-100 [Concomitant]
     Route: 065
  4. METOPROLOL [Concomitant]
     Route: 065
  5. ASPIRIN [Concomitant]
     Route: 065
  6. NEXIUM [Concomitant]
     Route: 065
  7. GABITRIL [Concomitant]
     Route: 065
  8. MORPHINE [Concomitant]
     Route: 065

REACTIONS (6)
  - ANGINA UNSTABLE [None]
  - CHEST DISCOMFORT [None]
  - CHEST PAIN [None]
  - DYSPNOEA [None]
  - HYPERHIDROSIS [None]
  - MYOCARDIAL INFARCTION [None]
